FAERS Safety Report 4841820-9 (Version None)
Quarter: 2005Q4

REPORT INFORMATION
  Report Type: 
  Country: None (occurrence: None)
  Receive Date: 20051130
  Receipt Date: 20051122
  Transmission Date: 20060501
  Serious: Yes (Other)
  Sender: FDA-Public Use
  Company Number: US-JNJFOC-20050602976

PATIENT
  Sex: Male
  Weight: 36.74 kg

DRUGS (3)
  1. TYLENOL (CAPLET) [Suspect]
     Route: 048
  2. TYLENOL (CAPLET) [Suspect]
     Indication: PAIN
     Route: 048
  3. ALBUTEROL [Concomitant]

REACTIONS (5)
  - ASTHMA [None]
  - DRUG HYPERSENSITIVITY [None]
  - HYPERSENSITIVITY [None]
  - LACRIMATION INCREASED [None]
  - REACTION TO DRUG EXCIPIENTS [None]
